FAERS Safety Report 15779209 (Version 1)
Quarter: 2019Q1

REPORT INFORMATION
  Report Type: Spontaneous
  Country: US (occurrence: US)
  Receive Date: 20190101
  Receipt Date: 20190101
  Transmission Date: 20190417
  Serious: No
  Sender: FDA-Public Use
  Company Number: US-PFIZER INC-2018535978

PATIENT
  Age: 59 Year
  Sex: Female

DRUGS (1)
  1. VERAPAMIL HCL [Suspect]
     Active Substance: VERAPAMIL HYDROCHLORIDE
     Dosage: 100 MG, 1X/DAY (TAKE ONE BY MOUTH EVERY NIGHT AT BEDTIME)
     Route: 048

REACTIONS (1)
  - Drug hypersensitivity [Unknown]
